FAERS Safety Report 6658551-5 (Version None)
Quarter: 2010Q1

REPORT INFORMATION
  Report Type: 
  Country: None (occurrence: None)
  Receive Date: 20100330
  Receipt Date: 20100304
  Transmission Date: 20100710
  Serious: No
  Sender: FDA-Public Use
  Company Number: US-BIOGENIDEC-2010BI007613

PATIENT
  Age: 49 Year
  Sex: Female

DRUGS (1)
  1. TYSABRI [Suspect]
     Indication: MULTIPLE SCLEROSIS
     Route: 042
     Dates: start: 20090828

REACTIONS (7)
  - COUGH [None]
  - EAR DISCOMFORT [None]
  - MALAISE [None]
  - PAIN [None]
  - PYREXIA [None]
  - SENSATION OF PRESSURE [None]
  - SINUS HEADACHE [None]
